FAERS Safety Report 11062129 (Version 3)
Quarter: 2015Q2

REPORT INFORMATION
  Report Type: Spontaneous
  Country: US (occurrence: US)
  Receive Date: 20150424
  Receipt Date: 20150630
  Transmission Date: 20150821
  Serious: No
  Sender: FDA-Public Use
  Company Number: US-009507513-1504USA020591

PATIENT
  Age: 21 Year
  Sex: Male
  Weight: 76.19 kg

DRUGS (3)
  1. BELSOMRA [Suspect]
     Active Substance: SUVOREXANT
     Dosage: 10 MG, ONE TABLET, ONCE DAILY, QHS
     Route: 048
     Dates: start: 20150419, end: 2015
  2. BELSOMRA [Suspect]
     Active Substance: SUVOREXANT
     Indication: INSOMNIA
     Dosage: 10 MG, ONE TABLET, ONCE DAILY, QHS
     Route: 048
     Dates: start: 20150416, end: 20150417
  3. UNISOM (DIPHENHYDRAMINE HYDROCHLORIDE) [Concomitant]

REACTIONS (8)
  - Tremor [Not Recovered/Not Resolved]
  - Agitation [Recovered/Resolved]
  - Thinking abnormal [Not Recovered/Not Resolved]
  - Sleep paralysis [Recovered/Resolved]
  - Drug ineffective [Not Recovered/Not Resolved]
  - Nervousness [Not Recovered/Not Resolved]
  - Paranoia [Not Recovered/Not Resolved]
  - Anxiety [Recovered/Resolved]

NARRATIVE: CASE EVENT DATE: 20150416
